FAERS Safety Report 5167182-8 (Version None)
Quarter: 2006Q4

REPORT INFORMATION
  Report Type: 
  Country: None (occurrence: None)
  Receive Date: 20061130
  Receipt Date: 20061117
  Transmission Date: 20070319
  Serious: No
  Sender: FDA-Public Use
  Company Number: 36986

PATIENT
  Age: 29 Year
  Sex: Male

DRUGS (4)
  1. DEXAMETHASONE 0.1% SUSPENSION, PHOSPHATE BUFFERED SALINE MAXIDEX [Suspect]
     Indication: ANTIINFLAMMATORY THERAPY
     Dosage: 500 ML PRN
     Route: 047
  2. DEXAMETHASONE 0.1% SUSPENSION, PHOSPHATE BUFFERED SALINE MAXIDEX [Suspect]
     Indication: EYE IRRIGATION
     Dosage: 500 ML PRN
     Route: 047
  3. ASCORBIC ACID [Concomitant]
  4. CHLORAMPHENICOL [Concomitant]

REACTIONS (3)
  - CORNEAL DEPOSITS [None]
  - CORNEAL TRANSPLANT [None]
  - VISUAL ACUITY REDUCED [None]
